FAERS Safety Report 7549206-3 (Version None)
Quarter: 2011Q2

REPORT INFORMATION
  Report Type: 
  Country: None (occurrence: None)
  Receive Date: 20110615
  Receipt Date: 20110602
  Transmission Date: 20111010
  Serious: Yes (Hospitalization)
  Sender: FDA-Public Use
  Company Number: PHHY2011JP46528

PATIENT
  Sex: Male
  Weight: 62 kg

DRUGS (10)
  1. LIMAPROST [Concomitant]
     Dosage: 15 UG, UNK
     Route: 048
     Dates: start: 20080418
  2. FAMVIR [Suspect]
     Indication: HERPES ZOSTER
     Dosage: 500 MG, ONE TIME DOSE (1500 MG DAILY)
     Route: 048
     Dates: start: 20110425, end: 20110426
  3. PLETAL [Concomitant]
     Dosage: 150 MG, UNK
     Route: 048
     Dates: start: 20080215
  4. LOXONIN [Concomitant]
     Dosage: UNK
  5. VERAHEXAL [Concomitant]
     Indication: HERPES ZOSTER
     Dosage: 250 MG, TID
  6. OLMESARTAN MEDOXOMIL [Concomitant]
     Dosage: 20 MG, UNK
     Route: 048
     Dates: start: 20090121
  7. SOLETON [Concomitant]
     Dosage: 240 MG, UNK
     Route: 048
     Dates: start: 20080418
  8. FAMOTIDINE [Concomitant]
     Dosage: 10 MG, UNK
     Route: 048
     Dates: start: 20091007
  9. SELTOUCH [Concomitant]
     Dosage: 70 MG, UNK
     Route: 061
     Dates: start: 20110408
  10. GLORIAMIN [Concomitant]
     Dosage: 2.01 G, UNK
     Route: 048
     Dates: start: 20080418

REACTIONS (9)
  - ALTERED STATE OF CONSCIOUSNESS [None]
  - SPEECH DISORDER [None]
  - PYREXIA [None]
  - APHASIA [None]
  - DYSARTHRIA [None]
  - GENERAL PHYSICAL HEALTH DETERIORATION [None]
  - ABASIA [None]
  - ENCEPHALOPATHY [None]
  - SOMNOLENCE [None]
